FAERS Safety Report 18153509 (Version 1)
Quarter: 2020Q3

REPORT INFORMATION
  Report Type: Spontaneous
  Country: US (occurrence: US)
  Receive Date: 20200816
  Receipt Date: 20200816
  Transmission Date: 20201103
  Serious: Yes (Other)
  Sender: FDA-Public Use
  Company Number: NVSC2020US222015

PATIENT
  Sex: Male

DRUGS (1)
  1. VOLTAREN [Suspect]
     Active Substance: DICLOFENAC SODIUM
     Indication: ARTHROPATHY
     Dosage: 1 DF (1.76 OZ), BID
     Route: 065
     Dates: start: 20200803, end: 20200805

REACTIONS (6)
  - Asthenia [Unknown]
  - Adverse drug reaction [Unknown]
  - Hallucination [Unknown]
  - Feeling drunk [Unknown]
  - Inappropriate schedule of product administration [Unknown]
  - Off label use [Unknown]
